FAERS Safety Report 5728384-2 (Version None)
Quarter: 2008Q2

REPORT INFORMATION
  Report Type: 
  Country: None (occurrence: None)
  Receive Date: 20080502
  Receipt Date: 20080502
  Transmission Date: 20081010
  Serious: No
  Sender: FDA-Public Use
  Company Number: None

PATIENT
  Age: 61 Year
  Sex: Male

DRUGS (11)
  1. CLINDAMYCIN HCL [Suspect]
     Dates: start: 20050227, end: 20050318
  2. LEVAQUIN [Suspect]
     Dates: start: 20050227, end: 20050318
  3. GLUCOVANCE [Concomitant]
  4. LIPITOR [Concomitant]
  5. ZOCOR [Concomitant]
  6. LISINOPRIL [Concomitant]
  7. PLAVIX [Concomitant]
  8. AVANDIA [Concomitant]
  9. CORAL CALCIUM [Concomitant]
  10. VITAMIN CAP [Concomitant]
  11. OMEGA-3 [Concomitant]

REACTIONS (25)
  - BLOOD CULTURE POSITIVE [None]
  - DRUG ERUPTION [None]
  - ENTEROCOCCAL INFECTION [None]
  - ESCHERICHIA URINARY TRACT INFECTION [None]
  - GALLBLADDER DISORDER [None]
  - GALLBLADDER POLYP [None]
  - HEPATIC FAILURE [None]
  - HEPATIC FIBROSIS [None]
  - HEPATIC STEATOSIS [None]
  - HYPOTENSION [None]
  - HYPOTHERMIA [None]
  - JAUNDICE CHOLESTATIC [None]
  - LIVER INJURY [None]
  - MENTAL STATUS CHANGES [None]
  - METABOLIC ACIDOSIS [None]
  - MULTI-ORGAN FAILURE [None]
  - OEDEMA PERIPHERAL [None]
  - RASH [None]
  - RASH MACULO-PAPULAR [None]
  - RENAL FAILURE [None]
  - RESPIRATORY FAILURE [None]
  - SEPSIS [None]
  - SKIN EXFOLIATION [None]
  - UROSEPSIS [None]
  - WEIGHT DECREASED [None]
